FAERS Safety Report 4433372-2 (Version None)
Quarter: 2004Q3

REPORT INFORMATION
  Report Type: 
  Country: None (occurrence: None)
  Receive Date: 20040824
  Receipt Date: 20040809
  Transmission Date: 20050211
  Serious: Yes (Hospitalization, Other)
  Sender: FDA-Public Use
  Company Number: 2004218608DE

PATIENT
  Age: 65 Year
  Sex: Male

DRUGS (3)
  1. BEXTRA [Suspect]
     Indication: PAIN IN EXTREMITY
     Dosage: 20 MG, QD, ORAL
     Route: 048
     Dates: start: 20040609, end: 20040609
  2. EUGLUCON (GLIBENCLAMIDE) [Concomitant]
  3. MEGLUCON [Concomitant]

REACTIONS (9)
  - ANXIETY [None]
  - DRUG ERUPTION [None]
  - EYE OEDEMA [None]
  - FACE OEDEMA [None]
  - HYPOTENSION [None]
  - RASH MORBILLIFORM [None]
  - RESTLESSNESS [None]
  - TOXIC EPIDERMAL NECROLYSIS [None]
  - TREMOR [None]
